FAERS Safety Report 8145689-9 (Version None)
Quarter: 2012Q1

REPORT INFORMATION
  Report Type: 
  Country: None (occurrence: None)
  Receive Date: 20120217
  Receipt Date: 20110606
  Transmission Date: 20120608
  Serious: No
  Sender: FDA-Public Use
  Company Number: US-ALLERGAN-1107691US

PATIENT
  Age: 44 Year
  Sex: Female

DRUGS (3)
  1. AVAGE [Suspect]
  2. AVAGE [Suspect]
     Indication: SKIN DISORDER
  3. AVAGE [Suspect]
     Indication: PIGMENTATION DISORDER
     Dosage: 1 APPLICATION APPLIED TOPICALLY TO THE FOREHEAD AND CHEEKS
     Route: 061

REACTIONS (2)
  - DRUG INEFFECTIVE [None]
  - SKIN DISORDER [None]
